FAERS Safety Report 24866593 (Version 3)
Quarter: 2025Q2

REPORT INFORMATION
  Report Type: Report from Study
  Country: US (occurrence: US)
  Receive Date: 20250121
  Receipt Date: 20250410
  Transmission Date: 20250717
  Serious: Yes (Hospitalization)
  Sender: SUNOVION
  Company Number: US-SMPA-2025SPA000391

PATIENT

DRUGS (3)
  1. ORGOVYX [Suspect]
     Active Substance: RELUGOLIX
     Indication: Prostate cancer
     Route: 048
  2. ORGOVYX [Suspect]
     Active Substance: RELUGOLIX
     Dosage: 120 MG, QD
     Route: 048
     Dates: start: 20220314
  3. ERLEADA [Suspect]
     Active Substance: APALUTAMIDE
     Route: 065

REACTIONS (5)
  - Gastroenteritis viral [Recovered/Resolved]
  - Fatigue [Unknown]
  - Arthritis [Unknown]
  - Hot flush [Not Recovered/Not Resolved]
  - Product dose omission issue [Unknown]
